FAERS Safety Report 9354186 (Version 1)
Quarter: 2013Q2

REPORT INFORMATION
  Report Type: Spontaneous
  Country: CH (occurrence: CH)
  Receive Date: 20130618
  Receipt Date: 20130618
  Transmission Date: 20140414
  Serious: Yes (Other)
  Sender: FDA-Public Use
  Company Number: CH-GLAXOSMITHKLINE-B0899828A

PATIENT
  Age: 42 Year
  Sex: Female

DRUGS (2)
  1. ZINAT [Suspect]
     Indication: EAR PAIN
     Dosage: 1000MG PER DAY
     Route: 048
     Dates: start: 20130527, end: 20130527
  2. OTRIVIN [Concomitant]
     Route: 045
     Dates: start: 20130527

REACTIONS (7)
  - Type I hypersensitivity [Recovered/Resolved]
  - Pruritus [Recovered/Resolved]
  - Feeling hot [Recovered/Resolved]
  - Nausea [Recovered/Resolved]
  - Dyspnoea [Recovered/Resolved]
  - Nervousness [Recovered/Resolved]
  - Rash erythematous [Recovered/Resolved]
